FAERS Safety Report 5521649-9 (Version None)
Quarter: 2007Q4

REPORT INFORMATION
  Report Type: 
  Country: None (occurrence: None)
  Receive Date: 20071120
  Receipt Date: 20071115
  Transmission Date: 20080405
  Serious: Yes (Hospitalization)
  Sender: FDA-Public Use
  Company Number: FR-WYE-G00621707

PATIENT
  Sex: Female

DRUGS (2)
  1. TAZOCILLINE [Suspect]
     Indication: PSEUDOMONAS INFECTION
     Dosage: UNKNOWN
     Route: 042
     Dates: start: 20070413, end: 20070420
  2. NEUPOGEN [Suspect]
     Dosage: UNKNOWN

REACTIONS (2)
  - ACUTE FEBRILE NEUTROPHILIC DERMATOSIS [None]
  - URTICARIA [None]
